FAERS Safety Report 6970672-6 (Version None)
Quarter: 2010Q3

REPORT INFORMATION
  Report Type: 
  Country: None (occurrence: None)
  Receive Date: 20100908
  Receipt Date: 20100824
  Transmission Date: 20110219
  Serious: No
  Sender: FDA-Public Use
  Company Number: US-PFIZER INC-2010106398

PATIENT
  Age: 64 Year
  Sex: Male

DRUGS (3)
  1. LYRICA [Suspect]
     Indication: DIABETIC NEUROPATHY
     Dosage: UNK
     Route: 048
     Dates: start: 20100101
  2. LYRICA [Suspect]
     Dosage: 150 MG, TWO TO THREE TIMES A DAY OR SOMETIMES AS NEEDED
     Route: 048
     Dates: start: 20100824
  3. VICODIN [Concomitant]
     Indication: PAIN
     Dosage: UNK, AS NEEDED
     Route: 048

REACTIONS (1)
  - SOMNOLENCE [None]
